FAERS Safety Report 5353905-1 (Version None)
Quarter: 2007Q2

REPORT INFORMATION
  Report Type: 
  Country: None (occurrence: None)
  Receive Date: 20070521
  Receipt Date: 20070123
  Transmission Date: 20071010
  Serious: No
  Sender: FDA-Public Use
  Company Number: WAES 0701USA04091

PATIENT
  Age: 74 Year
  Sex: Female
  Weight: 71.6683 kg

DRUGS (8)
  1. JANUVIA [Suspect]
     Indication: DIABETES MELLITUS
     Dosage: SEE IMAGE
     Route: 048
     Dates: start: 20061106, end: 20061101
  2. JANUVIA [Suspect]
     Indication: DIABETES MELLITUS
     Dosage: SEE IMAGE
     Route: 048
     Dates: start: 20061201, end: 20070111
  3. BENICAR [Concomitant]
  4. COZAAR [Concomitant]
  5. SYNTHROID [Concomitant]
  6. TOPROL-XL [Concomitant]
  7. ALLOPURINOL [Concomitant]
  8. METFORMIN HCL [Concomitant]

REACTIONS (1)
  - RASH GENERALISED [None]
